FAERS Safety Report 23056342 (Version 1)
Quarter: 2023Q4

REPORT INFORMATION
  Report Type: Other
  Country: CA (occurrence: CA)
  Receive Date: 20231011
  Receipt Date: 20231011
  Transmission Date: 20240109
  Serious: Yes (Hospitalization)
  Sender: FDA-Public Use
  Company Number: CA-PFIZER INC-202300322132

PATIENT

DRUGS (2)
  1. HYDROMORPHONE HYDROCHLORIDE [Suspect]
     Active Substance: HYDROMORPHONE HYDROCHLORIDE
     Indication: Drug withdrawal syndrome neonatal
     Route: 042
  2. FENTANYL [Suspect]
     Active Substance: FENTANYL
     Indication: Drug withdrawal syndrome neonatal
     Route: 042

REACTIONS (9)
  - Congenital syphilis [Unknown]
  - Drug withdrawal syndrome neonatal [Unknown]
  - Enteral nutrition [Unknown]
  - Lack of prenatal care [Unknown]
  - Premature baby [Unknown]
  - Prophylaxis against HIV infection [Unknown]
  - Neonatal respiratory distress [Unknown]
  - Sepsis neonatal [Unknown]
  - Off label use [Unknown]
